FAERS Safety Report 6212297-6 (Version None)
Quarter: 2009Q2

REPORT INFORMATION
  Report Type: 
  Country: None (occurrence: None)
  Receive Date: 20090529
  Receipt Date: 20090514
  Transmission Date: 20091009
  Serious: Yes (Hospitalization)
  Sender: FDA-Public Use
  Company Number: 8044531

PATIENT
  Age: 70 Year
  Sex: Female
  Weight: 77 kg

DRUGS (9)
  1. CERTOLIZUMAB PEGOL [Suspect]
     Indication: RHEUMATOID ARTHRITIS
     Dosage: 200 MG 1/2W SC
     Route: 058
     Dates: start: 20060104, end: 20060621
  2. CERTOLIZUMAB PEGOL [Suspect]
     Indication: RHEUMATOID ARTHRITIS
     Dosage: 400 MG 1/2W SC
     Route: 058
     Dates: start: 20060701, end: 20071120
  3. CERTOLIZUMAB PEGOL [Suspect]
     Indication: RHEUMATOID ARTHRITIS
     Dosage: 200 MG 1/2W SC
     Route: 058
     Dates: start: 20071121, end: 20090225
  4. METHOTREXATE [Concomitant]
  5. FOLIC ACID [Concomitant]
  6. .. [Concomitant]
  7. PREDNISOLONE [Concomitant]
  8. NIMESIL [Concomitant]
  9. METOPROLOL TARTRATE [Concomitant]

REACTIONS (2)
  - BREAST CANCER FEMALE [None]
  - ELECTROCARDIOGRAM ST-T CHANGE [None]
